FAERS Safety Report 13610816 (Version 1)
Quarter: 2017Q2

REPORT INFORMATION
  Report Type: Spontaneous
  Country: US (occurrence: US)
  Receive Date: 20170602
  Receipt Date: 20170602
  Transmission Date: 20170830
  Serious: Yes (Other)
  Sender: FDA-Public Use
  Company Number: None

PATIENT
  Age: 25 Year
  Sex: Female
  Weight: 54.48 kg

DRUGS (1)
  1. NEXPLANON [Suspect]
     Active Substance: ETONOGESTREL
     Indication: CONTRACEPTION
     Dosage: 1INJECTIONS, ONCE VERY 3 YEARS, GIVEN INTO/UNDER THE SKIN
     Dates: start: 20170504, end: 20170515

REACTIONS (13)
  - Loss of personal independence in daily activities [None]
  - Device difficult to use [None]
  - Feeding disorder [None]
  - Decreased appetite [None]
  - Impaired driving ability [None]
  - Depression [None]
  - Vision blurred [None]
  - Impaired work ability [None]
  - Gastrointestinal disorder [None]
  - Depressed mood [None]
  - Anxiety [None]
  - Crying [None]
  - Panic attack [None]

NARRATIVE: CASE EVENT DATE: 20170504
